FAERS Safety Report 13528660 (Version 2)
Quarter: 2017Q2

REPORT INFORMATION
  Report Type: Spontaneous
  Country: US (occurrence: US)
  Receive Date: 20170509
  Receipt Date: 20170620
  Transmission Date: 20170830
  Serious: Yes (Other)
  Sender: FDA-Public Use
  Company Number: US-PFIZER INC-2017201710

PATIENT
  Sex: Female

DRUGS (1)
  1. XELJANZ [Suspect]
     Active Substance: TOFACITINIB CITRATE
     Dosage: 5 MG, UNK

REACTIONS (15)
  - Rash [Unknown]
  - Haemorrhage [Unknown]
  - Peripheral swelling [Unknown]
  - Dry skin [Unknown]
  - Pain in extremity [Unknown]
  - Joint swelling [Unknown]
  - Arthralgia [Unknown]
  - Carbon dioxide abnormal [Unknown]
  - Psoriasis [Unknown]
  - Alopecia [Unknown]
  - Oedema [Unknown]
  - Contusion [Unknown]
  - Pain [Unknown]
  - Diarrhoea [Unknown]
  - Skin exfoliation [Unknown]
